FAERS Safety Report 9612470 (Version 2)
Quarter: 2013Q4

REPORT INFORMATION
  Report Type: Spontaneous
  Country: US (occurrence: US)
  Receive Date: 20131010
  Receipt Date: 20131213
  Transmission Date: 20140711
  Serious: Yes (Hospitalization)
  Sender: FDA-Public Use
  Company Number: US-NOVOPROD-389432

PATIENT
  Age: 63 Year
  Sex: Female
  Weight: 75.28 kg

DRUGS (5)
  1. VICTOZA [Suspect]
     Indication: TYPE 2 DIABETES MELLITUS
     Dosage: TITRATED TO 1.8 MG, QD
     Route: 058
     Dates: start: 20100525, end: 201309
  2. VICTOZA [Suspect]
     Dosage: UNK
     Route: 058
     Dates: start: 20130916, end: 20130924
  3. LEVEMIR FLEXPEN [Suspect]
     Indication: TYPE 2 DIABETES MELLITUS
     Dosage: TITRATED TO 60 U, QD
     Route: 058
     Dates: start: 20121214, end: 201309
  4. LEVEMIR FLEXPEN [Suspect]
     Dosage: 20 U, QD
     Route: 058
     Dates: start: 201309
  5. LANTUS [Suspect]
     Indication: TYPE 2 DIABETES MELLITUS
     Dosage: UNK
     Route: 058
     Dates: start: 20130909

REACTIONS (11)
  - Cellulitis [Recovering/Resolving]
  - Interstitial granulomatous dermatitis [Recovering/Resolving]
  - Panniculitis [Recovering/Resolving]
  - Anaemia [Not Recovered/Not Resolved]
  - Condition aggravated [Not Recovered/Not Resolved]
  - Blood iron decreased [Not Recovered/Not Resolved]
  - Injection site ulcer [Not Recovered/Not Resolved]
  - Blood glucose abnormal [Unknown]
  - Injection site urticaria [Not Recovered/Not Resolved]
  - Injection site pain [Unknown]
  - Injection site erythema [Recovered/Resolved]
